FAERS Safety Report 5062675-6 (Version None)
Quarter: 2006Q3

REPORT INFORMATION
  Report Type: 
  Country: None (occurrence: None)
  Receive Date: 20060703
  Receipt Date: 20051031
  Transmission Date: 20061208
  Serious: No
  Sender: FDA-Public Use
  Company Number: 2005S1010681

PATIENT
  Age: 64 Year
  Sex: Male

DRUGS (8)
  1. CLOZAPINE [Suspect]
     Dosage: 100 MG; HS; PO
     Route: 048
     Dates: start: 20030904
  2. ISRADIPINE [Concomitant]
  3. ACETAMINOPHEN [Concomitant]
  4. FINASTERIDE [Concomitant]
  5. ACETYLSALICYLIC ACID/ DIPYRIDAMOL [Concomitant]
  6. CLONIDINE [Concomitant]
  7. LISINOPRIL [Concomitant]
  8. METOPROLOL TARTRATE [Concomitant]

REACTIONS (1)
  - GRANULOCYTOPENIA [None]
